FAERS Safety Report 13397226 (Version 1)
Quarter: 2017Q2

REPORT INFORMATION
  Report Type: Report from Study
  Country: PL (occurrence: PL)
  Receive Date: 20170403
  Receipt Date: 20170403
  Transmission Date: 20170830
  Serious: Yes (Other)
  Sender: FDA-Public Use
  Company Number: PL-ASTELLAS-2017US012713

PATIENT

DRUGS (1)
  1. ERLOTINIB [Suspect]
     Active Substance: ERLOTINIB
     Indication: NON-SMALL CELL LUNG CANCER
     Dosage: UNK UNK, ONCE DAILY
     Route: 048

REACTIONS (5)
  - Spinal pain [Unknown]
  - Rash [Unknown]
  - Pericardial effusion [Unknown]
  - Hyperbilirubinaemia [Unknown]
  - Chest pain [Unknown]
